FAERS Safety Report 5301884-5 (Version None)
Quarter: 2007Q2

REPORT INFORMATION
  Report Type: 
  Country: None (occurrence: None)
  Receive Date: 20070416
  Receipt Date: 20070416
  Transmission Date: 20071010
  Serious: Yes (Other)
  Sender: FDA-Public Use
  Company Number: None

PATIENT
  Age: 1 Day
  Sex: Female
  Weight: 0.98 kg

DRUGS (2)
  1. INFASURF PRESERVATIVE FREE [Suspect]
     Indication: APGAR SCORE LOW
     Dosage: 2 ML ONCE ENDOTRACHEAL
     Route: 007
     Dates: start: 20070323, end: 20070323
  2. INFASURF PRESERVATIVE FREE [Suspect]
     Indication: PREMATURE BABY
     Dosage: 2 ML ONCE ENDOTRACHEAL
     Route: 007
     Dates: start: 20070323, end: 20070323

REACTIONS (5)
  - BRADYCARDIA [None]
  - CYANOSIS [None]
  - ENDOTRACHEAL INTUBATION COMPLICATION [None]
  - HYPOVENTILATION [None]
  - OBSTRUCTIVE AIRWAYS DISORDER [None]
